FAERS Safety Report 5383455-8 (Version None)
Quarter: 2007Q3

REPORT INFORMATION
  Report Type: 
  Country: None (occurrence: None)
  Receive Date: 20070710
  Receipt Date: 20070702
  Transmission Date: 20080115
  Serious: Yes (Death, Hospitalization)
  Sender: FDA-Public Use
  Company Number: SE-BOEHRINGER INGELHEIM PHARMACEUTICALS, INC.-2007-SW-00266SW

PATIENT
  Age: 6 Year
  Sex: Female

DRUGS (6)
  1. CATAPRES [Suspect]
     Dosage: SEE NARRATIVE
  2. OXYNORM [Suspect]
     Dosage: SEE NARRATIVE
  3. STESOLID [Suspect]
     Dosage: SEE NARRATIVE
     Route: 054
  4. MORFIN EPIDURAL [Suspect]
     Dosage: SEE NARRATIVE
     Dates: end: 20070429
  5. KAVEPENIN [Concomitant]
     Indication: TONSILLITIS
     Dates: start: 20070301, end: 20070401
  6. BAKLOFEN MERCK NM [Concomitant]
     Indication: MUSCLE SPASTICITY
     Dosage: SEE NARRATIVE
     Dates: start: 20070120

REACTIONS (10)
  - BRONCHITIS [None]
  - BRONCHOPNEUMONIA [None]
  - DEPRESSED LEVEL OF CONSCIOUSNESS [None]
  - HYPERHIDROSIS [None]
  - MUSCULOSKELETAL STIFFNESS [None]
  - OVERDOSE [None]
  - OXYGEN SATURATION DECREASED [None]
  - RESPIRATORY DISORDER [None]
  - RESPIRATORY RATE DECREASED [None]
  - SKIN WARM [None]
